FAERS Safety Report 9100298 (Version 2)
Quarter: 2013Q2

REPORT INFORMATION
  Report Type: Spontaneous
  Country: TR (occurrence: TR)
  Receive Date: 20130214
  Receipt Date: 20130402
  Transmission Date: 20140414
  Serious: Yes (Hospitalization, Other)
  Sender: FDA-Public Use
  Company Number: TR-RANBAXY-2013RR-64986

PATIENT
  Age: 15 Year
  Sex: Female

DRUGS (1)
  1. METFORMIN [Suspect]
     Dosage: 40000 MG (40 TABLETS OF METFORMIN 1000MG)
     Route: 048

REACTIONS (6)
  - Lactic acidosis [Recovering/Resolving]
  - Hypoglycaemia [Unknown]
  - Intentional overdose [Unknown]
  - Hypotension [Unknown]
  - Suicide attempt [Unknown]
  - Respiratory distress [Recovering/Resolving]
